FAERS Safety Report 8561584-5 (Version None)
Quarter: 2012Q3

REPORT INFORMATION
  Report Type: 
  Country: None (occurrence: None)
  Receive Date: 20120802
  Receipt Date: 20120724
  Transmission Date: 20120928
  Serious: No
  Sender: FDA-Public Use
  Company Number: US-ASTRAZENECA-2012SE52009

PATIENT
  Age: 25 Year
  Sex: Male

DRUGS (1)
  1. SEROQUEL XR [Suspect]
     Route: 048

REACTIONS (1)
  - ORCHITIS NONINFECTIVE [None]
